FAERS Safety Report 22519245 (Version 1)
Quarter: 2023Q2

REPORT INFORMATION
  Report Type: Spontaneous
  Country: CN (occurrence: None)
  Receive Date: 20230605
  Receipt Date: 20230605
  Transmission Date: 20230722
  Serious: Yes (Hospitalization)
  Sender: FDA-Public Use
  Company Number: CN-Merck Healthcare KGaA-9405129

PATIENT
  Age: 32 Year
  Sex: Female
  Weight: 57 kg

DRUGS (8)
  1. OVIDREL [Suspect]
     Active Substance: CHORIOGONADOTROPIN ALFA
     Indication: In vitro fertilisation
     Route: 058
     Dates: start: 20230506, end: 20230506
  2. OVIDREL [Suspect]
     Active Substance: CHORIOGONADOTROPIN ALFA
     Indication: Ovulation induction
  3. MENOTROPINS [Suspect]
     Active Substance: MENOTROPINS
     Indication: In vitro fertilisation
     Route: 030
     Dates: start: 20230428, end: 20230502
  4. MENOTROPINS [Suspect]
     Active Substance: MENOTROPINS
     Indication: Ovulation induction
     Route: 030
     Dates: start: 20230503, end: 20230506
  5. FOLLITROPIN BETA [Suspect]
     Active Substance: FOLLITROPIN BETA
     Indication: In vitro fertilisation
     Route: 058
     Dates: start: 20230428, end: 20230505
  6. FOLLITROPIN BETA [Suspect]
     Active Substance: FOLLITROPIN BETA
     Indication: Ovulation induction
  7. SODIUM CHLORIDE [Concomitant]
     Active Substance: SODIUM CHLORIDE
     Indication: Vehicle solution use
     Route: 030
     Dates: start: 20230428, end: 20230502
  8. SODIUM CHLORIDE [Concomitant]
     Active Substance: SODIUM CHLORIDE
     Route: 030
     Dates: start: 20230503, end: 20230506

REACTIONS (7)
  - Dizziness [Recovering/Resolving]
  - Tension [Recovering/Resolving]
  - Asthenia [Recovering/Resolving]
  - Nausea [Recovering/Resolving]
  - Vomiting [Recovering/Resolving]
  - Abdominal distension [Recovering/Resolving]
  - Ovarian hyperstimulation syndrome [Recovering/Resolving]

NARRATIVE: CASE EVENT DATE: 20230506
